FAERS Safety Report 25043252 (Version 2)
Quarter: 2025Q3

REPORT INFORMATION
  Report Type: Report from Study
  Country: CA (occurrence: CA)
  Receive Date: 20250305
  Receipt Date: 20250820
  Transmission Date: 20251021
  Serious: Yes (Hospitalization, Other)
  Sender: ABBVIE
  Company Number: CA-ABBVIE-6160973

PATIENT
  Age: 66 Year
  Sex: Female

DRUGS (3)
  1. RINVOQ [Suspect]
     Active Substance: UPADACITINIB
     Indication: Ankylosing spondylitis
     Dosage: TAKE 1 TABLET (15MG) ORALLY ONCE DAILY
     Route: 048
     Dates: start: 20240410, end: 202501
  2. RINVOQ [Suspect]
     Active Substance: UPADACITINIB
     Indication: Ankylosing spondylitis
     Dosage: TAKE 1 TABLET (15MG) ORALLY ONCE DAILY?LAST ADMIN DATE WAS 2025
     Route: 048
     Dates: start: 20250218
  3. RINVOQ [Suspect]
     Active Substance: UPADACITINIB
     Indication: Ankylosing spondylitis
     Route: 048

REACTIONS (1)
  - Bladder repair [Recovered/Resolved]

NARRATIVE: CASE EVENT DATE: 20250203
